FAERS Safety Report 8101591-X (Version None)
Quarter: 2012Q1

REPORT INFORMATION
  Report Type: 
  Country: None (occurrence: None)
  Receive Date: 20120129
  Receipt Date: 20110927
  Transmission Date: 20120608
  Serious: Yes (Other)
  Sender: FDA-Public Use
  Company Number: US-ABBOTT-11P-163-0858662-00

PATIENT
  Sex: Female
  Weight: 94.432 kg

DRUGS (4)
  1. TYLENOL-500 [Concomitant]
     Indication: ARTHRALGIA
  2. HUMIRA [Suspect]
     Route: 058
     Dates: start: 20110501
  3. METHOTREXATE [Concomitant]
     Indication: RHEUMATOID ARTHRITIS
     Dosage: SIX TABLETS WEEKLY
  4. HUMIRA [Suspect]
     Indication: RHEUMATOID ARTHRITIS
     Route: 058
     Dates: start: 20070101, end: 20110301

REACTIONS (4)
  - NODULE [None]
  - ARTHRALGIA [None]
  - INJECTION SITE PAIN [None]
  - PAIN IN EXTREMITY [None]
